FAERS Safety Report 4724955-0 (Version None)
Quarter: 2005Q3

REPORT INFORMATION
  Report Type: 
  Country: None (occurrence: None)
  Receive Date: 20050722
  Receipt Date: 20050722
  Transmission Date: 20060218
  Serious: Yes (Hospitalization)
  Sender: FDA-Public Use
  Company Number: None

PATIENT
  Age: 16 Year
  Sex: Male

DRUGS (1)
  1. TACROLIMUS 8 MG [Suspect]
     Indication: RENAL FAILURE CHRONIC
     Dosage: 8 MG TID

REACTIONS (2)
  - BLOOD CREATININE INCREASED [None]
  - DRUG LEVEL INCREASED [None]
